FAERS Safety Report 4275001-7 (Version None)
Quarter: 2004Q1

REPORT INFORMATION
  Report Type: 
  Country: None (occurrence: None)
  Receive Date: 20040116
  Receipt Date: 20040108
  Transmission Date: 20041129
  Serious: Yes (Hospitalization, Other)
  Sender: FDA-Public Use
  Company Number: 2004-01-0173

PATIENT
  Age: 44 Year
  Sex: Female

DRUGS (3)
  1. INTERFERON ALFA-2B INJECTABLE [Suspect]
     Dosage: 5 MU/M2
  2. TRIZIVIR [Suspect]
     Indication: HIV INFECTION
  3. OPIATE AND OPIOID ANALGESIC (NOS) [Concomitant]

REACTIONS (7)
  - ASCITES [None]
  - BLOOD AMYLASE INCREASED [None]
  - CARDIOLIPIN ANTIBODY POSITIVE [None]
  - DRUG EFFECT DECREASED [None]
  - HAEMOLYTIC URAEMIC SYNDROME [None]
  - INTESTINAL ISCHAEMIA [None]
  - LIPASE INCREASED [None]
